FAERS Safety Report 13007792 (Version 1)
Quarter: 2016Q4

REPORT INFORMATION
  Report Type: Report from Study
  Country: US (occurrence: US)
  Receive Date: 20161207
  Receipt Date: 20161207
  Transmission Date: 20170207
  Serious: Yes (Hospitalization)
  Sender: FDA-Public Use
  Company Number: US-EISAI MEDICAL RESEARCH-EC-2016-018129

PATIENT
  Age: 75 Year
  Sex: Female
  Weight: 53 kg

DRUGS (6)
  1. LENVIMA [Suspect]
     Active Substance: LENVATINIB
     Route: 048
     Dates: start: 2016, end: 201611
  2. SYNTHROID [Concomitant]
     Active Substance: LEVOTHYROXINE SODIUM
  3. LENVIMA [Suspect]
     Active Substance: LENVATINIB
     Route: 048
     Dates: start: 20160830, end: 20161006
  4. LISINOPRIL. [Concomitant]
     Active Substance: LISINOPRIL
  5. LENVIMA [Suspect]
     Active Substance: LENVATINIB
     Indication: THYROID CANCER
     Route: 048
     Dates: start: 20160603, end: 201608
  6. AMBIEN [Concomitant]
     Active Substance: ZOLPIDEM TARTRATE

REACTIONS (16)
  - Mouth haemorrhage [Unknown]
  - Pain [Unknown]
  - Dizziness [Unknown]
  - Road traffic accident [Recovered/Resolved]
  - Diarrhoea [Recovering/Resolving]
  - Decreased appetite [Recovering/Resolving]
  - Asthenia [Recovering/Resolving]
  - Oral pain [Unknown]
  - Stomatitis [Unknown]
  - Blood pressure increased [Unknown]
  - Neck pain [Unknown]
  - Back pain [Unknown]
  - Gait disturbance [Recovering/Resolving]
  - Dry mouth [Unknown]
  - Alopecia [Unknown]
  - Headache [Unknown]

NARRATIVE: CASE EVENT DATE: 2016
